FAERS Safety Report 21792030 (Version 1)
Quarter: 2022Q4

REPORT INFORMATION
  Report Type: Other
  Country: US (occurrence: US)
  Receive Date: 20221229
  Receipt Date: 20221229
  Transmission Date: 20230112
  Serious: Yes (Hospitalization)
  Sender: FDA-Public Use
  Company Number: US-GBT-018908

PATIENT
  Sex: Male

DRUGS (1)
  1. OXBRYTA [Suspect]
     Active Substance: VOXELOTOR
     Indication: Product used for unknown indication
     Dates: end: 202210

REACTIONS (4)
  - Sickle cell anaemia with crisis [Unknown]
  - Acne [Recovered/Resolved]
  - Therapy cessation [Unknown]
  - Product dose omission issue [Unknown]
